FAERS Safety Report 6677399-9 (Version None)
Quarter: 2010Q2

REPORT INFORMATION
  Report Type: 
  Country: None (occurrence: None)
  Receive Date: 20100412
  Receipt Date: 20100111
  Transmission Date: 20101027
  Serious: No
  Sender: FDA-Public Use
  Company Number: US-ALEXION-A201000024

PATIENT
  Sex: Male

DRUGS (11)
  1. SOLIRIS [Suspect]
     Indication: PAROXYSMAL NOCTURNAL HAEMOGLOBINURIA
     Dosage: 600 MG, SINGLE
     Route: 042
     Dates: start: 20090126, end: 20090126
  2. SOLIRIS [Suspect]
     Dosage: 600 MG, QW
     Route: 042
     Dates: start: 20090201, end: 20090301
  3. SOLIRIS [Suspect]
     Dosage: 900 MG, Q2W
     Route: 042
     Dates: start: 20090301
  4. EXJADE [Suspect]
     Dosage: UNK
     Dates: end: 20100201
  5. LASIX [Concomitant]
     Dosage: 20 MG, BID
     Route: 048
  6. PRILOSEC [Concomitant]
     Dosage: 20 MG, PRN
     Route: 048
  7. FOLIC ACID [Concomitant]
     Dosage: 1 MG, QD
     Route: 048
  8. AMBIEN [Concomitant]
     Dosage: 10 MG, PRN
     Route: 048
  9. ALTACE [Concomitant]
     Dosage: 2.5, QD
     Route: 048
  10. LIPITOR [Concomitant]
     Dosage: 40 MG, QD
     Route: 048
  11. TOPROL-XL [Concomitant]
     Dosage: 50 MG, QD
     Route: 048

REACTIONS (9)
  - ACTIVITIES OF DAILY LIVING IMPAIRED [None]
  - EAR HAEMORRHAGE [None]
  - EATING DISORDER [None]
  - FATIGUE [None]
  - HAEMOGLOBIN DECREASED [None]
  - HYPOTENSION [None]
  - JAUNDICE [None]
  - MICTURITION DISORDER [None]
  - THIRST [None]
